FAERS Safety Report 24085396 (Version 1)
Quarter: 2024Q3

REPORT INFORMATION
  Report Type: Report from Study
  Country: US (occurrence: US)
  Receive Date: 20240712
  Receipt Date: 20240712
  Transmission Date: 20241017
  Serious: No
  Sender: ALEXION PHARMACEUTICALS
  Company Number: US-ALXN-202407USA000636US

PATIENT
  Sex: Female

DRUGS (4)
  1. SOLIRIS [Suspect]
     Active Substance: ECULIZUMAB
     Indication: Myasthenia gravis
     Dosage: 1200 MILLIGRAM, Q2W
     Route: 042
     Dates: start: 202402
  2. SODIUM CHLOR (250ML/BAG) [Concomitant]
     Indication: Product used for unknown indication
     Dosage: 250 MILLIGRAM PER BAG
     Route: 065
  3. SODIUM CHLOR (250ML/BAG) [Concomitant]
     Dosage: 10 MILLIGRAM
     Route: 065
  4. HEPARIN L/F SYR (5ML/SYR) [Concomitant]
     Indication: Product used for unknown indication
     Dosage: 5 MILLIGRAM PER SYR
     Route: 065

REACTIONS (1)
  - Infection [Unknown]
